FAERS Safety Report 11253600 (Version 1)
Quarter: 2015Q3

REPORT INFORMATION
  Report Type: Spontaneous
  Country: NL (occurrence: NL)
  Receive Date: 20150709
  Receipt Date: 20150709
  Transmission Date: 20151125
  Serious: Yes (Disabling)
  Sender: FDA-Public Use
  Company Number: NL-ASTRAZENECA-2015SE64410

PATIENT
  Age: 7444 Day
  Sex: Female
  Weight: 96 kg

DRUGS (1)
  1. SEROQUEL XR [Suspect]
     Active Substance: QUETIAPINE FUMARATE
     Indication: PSYCHOTIC DISORDER
     Route: 048
     Dates: start: 20120622

REACTIONS (5)
  - Pain [Unknown]
  - Weight increased [Not Recovered/Not Resolved]
  - Metabolic syndrome [Not Recovered/Not Resolved]
  - Arthropathy [Unknown]
  - Fear [Unknown]

NARRATIVE: CASE EVENT DATE: 20120801
